FAERS Safety Report 8523912-6 (Version None)
Quarter: 2012Q3

REPORT INFORMATION
  Report Type: 
  Country: None (occurrence: None)
  Receive Date: 20120720
  Receipt Date: 20120713
  Transmission Date: 20120928
  Serious: Yes (Other)
  Sender: FDA-Public Use
  Company Number: BR-BAYER-2012-070297

PATIENT
  Age: 87 Year
  Sex: Female
  Weight: 58 kg

DRUGS (4)
  1. METHOTREXATE [Concomitant]
     Indication: RHEUMATIC FEVER
     Dosage: 10 MG, OW
     Route: 048
     Dates: start: 20110101
  2. AVELOX [Suspect]
     Indication: NASOPHARYNGITIS
     Dosage: 1 DF, QD
     Route: 048
     Dates: start: 20120629, end: 20120629
  3. VITAMIN D [Concomitant]
     Indication: SUPPLEMENTATION THERAPY
     Dosage: 1 DF, OW
     Route: 048
     Dates: start: 20110101
  4. VITAMIN A [Concomitant]
     Dosage: 1 DF, QD
     Route: 048
     Dates: start: 20120301

REACTIONS (4)
  - VOMITING [None]
  - CONFUSIONAL STATE [None]
  - MALAISE [None]
  - BEDRIDDEN [None]
